FAERS Safety Report 14098649 (Version 7)
Quarter: 2018Q3

REPORT INFORMATION
  Report Type: Report from Study
  Country: CA (occurrence: CA)
  Receive Date: 20171017
  Receipt Date: 20180913
  Transmission Date: 20181010
  Serious: Yes (Other)
  Sender: FDA-Public Use
  Company Number: CA-ROCHE-2005602

PATIENT
  Age: 64 Year
  Sex: Male
  Weight: 133.6 kg

DRUGS (12)
  1. ALLOPURINOL. [Concomitant]
     Active Substance: ALLOPURINOL
  2. FLOMAX [Concomitant]
     Active Substance: TAMSULOSIN HYDROCHLORIDE
  3. ESBRIET [Suspect]
     Active Substance: PIRFENIDONE
     Route: 048
     Dates: start: 2017
  4. NOVORAPID [Concomitant]
     Active Substance: INSULIN ASPART
  5. DILTIAZEM. [Concomitant]
     Active Substance: DILTIAZEM
  6. ACETYLSALICYLIC ACID [Concomitant]
     Active Substance: ASPIRIN
  7. ESBRIET [Suspect]
     Active Substance: PIRFENIDONE
     Dosage: (ON AVERAGE 1869 MG DAILY)
     Route: 048
  8. LANTUS [Concomitant]
     Active Substance: INSULIN GLARGINE
  9. ALTACE [Concomitant]
     Active Substance: RAMIPRIL
  10. ESBRIET [Suspect]
     Active Substance: PIRFENIDONE
     Indication: IDIOPATHIC PULMONARY FIBROSIS
     Route: 048
     Dates: start: 20170905
  11. ESBRIET [Suspect]
     Active Substance: PIRFENIDONE
     Route: 048
     Dates: start: 201709
  12. ROSUVASTATIN. [Concomitant]
     Active Substance: ROSUVASTATIN

REACTIONS (16)
  - Weight increased [Unknown]
  - Epistaxis [Unknown]
  - Drug ineffective [Unknown]
  - Dyspepsia [Not Recovered/Not Resolved]
  - Headache [Recovering/Resolving]
  - Fatigue [Not Recovered/Not Resolved]
  - Hyperaesthesia [Recovering/Resolving]
  - Dyspnoea [Not Recovered/Not Resolved]
  - Asthenia [Unknown]
  - Pruritus [Not Recovered/Not Resolved]
  - Nasal congestion [Unknown]
  - Flatulence [Not Recovered/Not Resolved]
  - Oxygen saturation decreased [Unknown]
  - Myalgia [Not Recovered/Not Resolved]
  - Drug dose omission [Unknown]
  - Dry skin [Not Recovered/Not Resolved]

NARRATIVE: CASE EVENT DATE: 20170915
